FAERS Safety Report 6041971-X (Version None)
Quarter: 2009Q1

REPORT INFORMATION
  Report Type: 
  Country: None (occurrence: None)
  Receive Date: 20090116
  Receipt Date: 20090104
  Transmission Date: 20090719
  Serious: Yes (Other)
  Sender: FDA-Public Use
  Company Number: US-PFIZER INC-2009151399

PATIENT
  Sex: Female
  Weight: 86.168 kg

DRUGS (8)
  1. CHANTIX [Suspect]
     Indication: SMOKING CESSATION THERAPY
     Dosage: 0.5 MG, 1X/DAY
     Route: 048
     Dates: start: 20090102
  2. LITHIUM [Concomitant]
     Dosage: UNK
     Route: 048
  3. OXYCONTIN [Concomitant]
     Dosage: UNK
     Route: 048
  4. PROMETHAZINE [Concomitant]
     Dosage: UNK
     Route: 048
  5. SOMA [Concomitant]
     Dosage: 350 MG, 1X/DAY
     Route: 048
  6. HALOPERIDOL [Concomitant]
     Dosage: UNK
     Route: 048
  7. ENDOCET [Concomitant]
     Dosage: UNK
     Route: 048
  8. RISPERDAL [Concomitant]
     Dosage: UNK
     Route: 048

REACTIONS (2)
  - MANIA [None]
  - PSYCHOTIC DISORDER [None]
